FAERS Safety Report 4864516-6 (Version None)
Quarter: 2005Q4

REPORT INFORMATION
  Report Type: 
  Country: None (occurrence: None)
  Receive Date: 20051222
  Receipt Date: 20051121
  Transmission Date: 20060501
  Serious: Yes (Other)
  Sender: FDA-Public Use
  Company Number: BE-ROCHE-425477

PATIENT
  Age: 30 Year
  Sex: Male
  Weight: 97 kg

DRUGS (4)
  1. PEGASYS [Suspect]
     Route: 065
     Dates: start: 20050815
  2. COPEGUS [Suspect]
     Route: 048
     Dates: start: 20050815
  3. ACETAMINOPHEN [Concomitant]
     Indication: THERAPEUTIC PROCEDURE
     Dosage: TAKEN AT DAY OF INJECTION.
  4. ROVAMYCIN [Concomitant]
     Indication: PAROTID GLAND ENLARGEMENT
     Dates: start: 20051116, end: 20051123

REACTIONS (3)
  - DYSGEUSIA [None]
  - GINGIVAL DISORDER [None]
  - TOOTH DISORDER [None]
